FAERS Safety Report 6123849-6 (Version None)
Quarter: 2009Q1

REPORT INFORMATION
  Report Type: 
  Country: None (occurrence: None)
  Receive Date: 20090318
  Receipt Date: 20090318
  Transmission Date: 20090719
  Serious: Yes (Hospitalization)
  Sender: FDA-Public Use
  Company Number: None

PATIENT
  Age: 43 Year
  Sex: Female
  Weight: 105.5 kg

DRUGS (26)
  1. BEVACIZUMAB GENENTECH [Suspect]
     Indication: BREAST CANCER METASTATIC
     Dosage: 10 MG/KG EVERY TWO WEEKS IV
     Route: 042
     Dates: start: 20071117, end: 20090302
  2. ABRAXANE [Suspect]
     Dosage: 10MG/ M2 WEEKLY FOR 3 WEEKS IV
     Route: 042
     Dates: start: 20071117, end: 20090302
  3. PEPCID [Concomitant]
  4. PRILOSEC [Concomitant]
  5. PROTONIX [Concomitant]
  6. SIMETHICONE [Concomitant]
  7. IRON [Concomitant]
  8. DEXTRAN INJ [Concomitant]
  9. ASA/BUFFERS [Concomitant]
  10. METOPROLOL [Concomitant]
  11. MAXZIDE [Concomitant]
  12. EFFEXOR [Concomitant]
  13. TRAZODONE HCL [Concomitant]
  14. LORAZEPAM [Concomitant]
  15. VICODIN [Concomitant]
  16. OXYCODONE HCL [Concomitant]
  17. TYLENOL [Concomitant]
  18. PHENERGAN [Concomitant]
  19. COMPAZINE [Concomitant]
  20. ZOFRAN [Concomitant]
  21. DECADRON [Concomitant]
  22. MUCINEX [Concomitant]
  23. DILTIAZEM [Concomitant]
  24. LIDOZONE [Concomitant]
  25. HYDROCODONE BITARTRATE [Concomitant]
  26. OXYCONTIN [Concomitant]

REACTIONS (1)
  - PULMONARY EMBOLISM [None]
